FAERS Safety Report 9721578 (Version 2)
Quarter: 2013Q4

REPORT INFORMATION
  Report Type: Spontaneous
  Country: JP (occurrence: JP)
  Receive Date: 20131201
  Receipt Date: 20131201
  Transmission Date: 20140711
  Serious: Yes (Hospitalization, Other)
  Sender: FDA-Public Use
  Company Number: PHHY2012JP008535

PATIENT
  Age: 41 Year
  Sex: Female

DRUGS (2)
  1. NEORAL [Suspect]
     Indication: INTERSTITIAL LUNG DISEASE
     Dosage: 250 MG, DAILY
     Route: 048
  2. ADRENAL HORMONE PREPARATIONS [Suspect]
     Indication: DERMATOMYOSITIS
     Route: 048

REACTIONS (9)
  - Respiratory disorder [Unknown]
  - Skin candida [Recovered/Resolved]
  - Limb injury [Unknown]
  - Abscess rupture [Unknown]
  - Subcutaneous abscess [Unknown]
  - Purulent discharge [Unknown]
  - Skin mass [Unknown]
  - Skin plaque [Unknown]
  - Rash [Unknown]
